FAERS Safety Report 8349142-9 (Version None)
Quarter: 2012Q2

REPORT INFORMATION
  Report Type: 
  Country: None (occurrence: None)
  Receive Date: 20120510
  Receipt Date: 20120427
  Transmission Date: 20120825
  Serious: Yes (Hospitalization)
  Sender: FDA-Public Use
  Company Number: JP-VERTEX PHARMACEUTICALS INC.-AE-2012-004622

PATIENT
  Age: 55 Year
  Sex: Female

DRUGS (7)
  1. REBETOL [Concomitant]
     Indication: HEPATITIS C
     Route: 048
     Dates: start: 20120131, end: 20120408
  2. TELAVIC (TELAPREVIR) [Suspect]
     Indication: HEPATITIS C
     Route: 048
     Dates: start: 20120131, end: 20120327
  3. PEG-INTRON [Concomitant]
     Indication: HEPATITIS C
     Dates: start: 20120131, end: 20120402
  4. REBETOL [Concomitant]
     Route: 048
     Dates: start: 20120409
  5. MICARDIS [Concomitant]
     Route: 048
     Dates: end: 20120304
  6. TORSEMIDE [Concomitant]
     Indication: FACE OEDEMA
     Route: 048
     Dates: start: 20120326, end: 20120405
  7. PEG-INTRON [Concomitant]
     Dates: start: 20120409

REACTIONS (5)
  - DIZZINESS [None]
  - NAUSEA [None]
  - VOMITING [None]
  - HYPOKALAEMIA [None]
  - FACE OEDEMA [None]
